FAERS Safety Report 8525829-X (Version None)
Quarter: 2012Q3

REPORT INFORMATION
  Report Type: 
  Country: None (occurrence: None)
  Receive Date: 20120720
  Receipt Date: 20120719
  Transmission Date: 20120928
  Serious: Yes (Other)
  Sender: FDA-Public Use
  Company Number: US-ABBOTT-12P-163-0932583-00

PATIENT
  Age: 35 Year
  Sex: Female

DRUGS (2)
  1. COMBIVIR [Suspect]
     Indication: ANTIVIRAL TREATMENT
     Route: 048
  2. KALETRA [Suspect]
     Indication: ANTIVIRAL TREATMENT
     Route: 048

REACTIONS (1)
  - ABORTION SPONTANEOUS [None]
